FAERS Safety Report 13442655 (Version 1)
Quarter: 2017Q2

REPORT INFORMATION
  Report Type: Spontaneous
  Country: US (occurrence: US)
  Receive Date: 20170413
  Receipt Date: 20170413
  Transmission Date: 20170830
  Serious: Yes (Death)
  Sender: FDA-Public Use
  Company Number: None

PATIENT
  Age: 51 Year
  Sex: Male
  Weight: 73.3 kg

DRUGS (1)
  1. MEMANTINE HYDROCHLORIDE. [Suspect]
     Active Substance: MEMANTINE HYDROCHLORIDE
     Dates: end: 20170213

REACTIONS (10)
  - Feeding disorder [None]
  - Metastases to peritoneum [None]
  - Movement disorder [None]
  - Disease progression [None]
  - Metastases to bone [None]
  - Lymphadenopathy mediastinal [None]
  - Lymphadenopathy [None]
  - Nodule [None]
  - Hepatic mass [None]
  - Metastases to gastrointestinal tract [None]

NARRATIVE: CASE EVENT DATE: 20170213
